FAERS Safety Report 6688282-7 (Version None)
Quarter: 2010Q2

REPORT INFORMATION
  Report Type: 
  Country: None (occurrence: None)
  Receive Date: 20100420
  Receipt Date: 20100205
  Transmission Date: 20101027
  Serious: No
  Sender: FDA-Public Use
  Company Number: JP-ROCHE-689058

PATIENT

DRUGS (1)
  1. TAMIFLU [Suspect]
     Indication: ANTIVIRAL PROPHYLAXIS
     Dosage: FORM: ORAL FORMATION(NOT OTHERWISE SPECIFIED), ACTION TAKEN: UNKNOWN
     Route: 064
     Dates: start: 20091027, end: 20091105

REACTIONS (1)
  - JAUNDICE NEONATAL [None]
